FAERS Safety Report 14340964 (Version 1)
Quarter: 2018Q1

REPORT INFORMATION
  Report Type: Spontaneous
  Country: CN (occurrence: CN)
  Receive Date: 20180102
  Receipt Date: 20180102
  Transmission Date: 20180509
  Serious: Yes (Disabling)
  Sender: FDA-Public Use
  Company Number: CN-ROCHE-2048099

PATIENT
  Age: 40 Year
  Sex: Female
  Weight: 52 kg

DRUGS (2)
  1. XELODA [Suspect]
     Active Substance: CAPECITABINE
     Indication: METASTASES TO BONE
     Route: 048
     Dates: start: 20170620, end: 20170704
  2. XELODA [Suspect]
     Active Substance: CAPECITABINE
     Indication: BREAST CANCER

REACTIONS (1)
  - Hepatic function abnormal [Recovering/Resolving]

NARRATIVE: CASE EVENT DATE: 20170704
